FAERS Safety Report 6869279-0 (Version None)
Quarter: 2010Q3

REPORT INFORMATION
  Report Type: 
  Country: None (occurrence: None)
  Receive Date: 20100722
  Receipt Date: 20080814
  Transmission Date: 20110219
  Serious: No
  Sender: FDA-Public Use
  Company Number: US-PFIZER INC-2008061800

PATIENT
  Sex: Female
  Weight: 77.272 kg

DRUGS (4)
  1. CHANTIX [Suspect]
     Indication: SMOKING CESSATION THERAPY
     Route: 048
     Dates: start: 20071101
  2. DIOVANE [Concomitant]
     Indication: BLOOD PRESSURE
  3. LOTREL [Concomitant]
     Indication: BLOOD PRESSURE
  4. EVOXAC [Concomitant]
     Indication: SJOGREN'S SYNDROME

REACTIONS (1)
  - GASTRIC DISORDER [None]
